FAERS Safety Report 20794062 (Version 1)
Quarter: 2022Q2

REPORT INFORMATION
  Report Type: Spontaneous
  Country: US (occurrence: US)
  Receive Date: 20220506
  Receipt Date: 20220506
  Transmission Date: 20220721
  Serious: No
  Sender: FDA-Public Use
  Company Number: US-CASPERPHARMA-US-2022RISSPO00431

PATIENT
  Age: 5 Year

DRUGS (1)
  1. VITAMIN A PALMITATE [Suspect]
     Active Substance: VITAMIN A PALMITATE
     Indication: Product used for unknown indication
     Route: 042
     Dates: start: 20220423, end: 20220425

REACTIONS (1)
  - Product storage error [Unknown]
